FAERS Safety Report 4461606-7 (Version None)
Quarter: 2004Q3

REPORT INFORMATION
  Report Type: 
  Country: None (occurrence: None)
  Receive Date: 20040927
  Receipt Date: 20040927
  Transmission Date: 20050211
  Serious: No
  Sender: FDA-Public Use
  Company Number: None

PATIENT
  Sex: Female

DRUGS (2)
  1. KYTRIL [Suspect]
     Indication: POST PROCEDURAL NAUSEA
     Dosage: 0.1 MG IV PRN
     Route: 042
  2. KYTRIL [Suspect]
     Indication: POST PROCEDURAL VOMITING
     Dosage: 0.1 MG IV PRN
     Route: 042

REACTIONS (2)
  - DYSTONIA [None]
  - GRIP STRENGTH DECREASED [None]
